FAERS Safety Report 16793728 (Version 1)
Quarter: 2019Q3

REPORT INFORMATION
  Report Type: Spontaneous
  Country: GB (occurrence: GB)
  Receive Date: 20190911
  Receipt Date: 20190911
  Transmission Date: 20191005
  Serious: Yes (Other)
  Sender: FDA-Public Use
  Company Number: GB-TEVA-2019-GB-1104039

PATIENT
  Age: 79 Year
  Sex: Female
  Weight: 67 kg

DRUGS (7)
  1. LANSOPRAZOLE. [Concomitant]
     Active Substance: LANSOPRAZOLE
     Dosage: 1 DOSAGE FORMS 1 DAYS
     Dates: start: 20111201
  2. NITROFURANTOIN. [Suspect]
     Active Substance: NITROFURANTOIN
     Dosage: 200 MG 1 DAYS
     Dates: start: 20190807
  3. LISINOPRIL. [Concomitant]
     Active Substance: LISINOPRIL
     Dosage: 1 DOSAGE FORMS 1 DAYS
     Dates: start: 20070806
  4. CLOTRIMAZOLE. [Concomitant]
     Active Substance: CLOTRIMAZOLE
     Dosage: INSERT AT NIGHT  1 DOSAGE FORMS 1 DAYS
     Dates: start: 20190809, end: 20190812
  5. TAMOXIFEN [Concomitant]
     Active Substance: TAMOXIFEN
     Dosage: 1 DOSAGE FORMS 1 DAYS
     Dates: start: 20171228
  6. SIMVASTATIN. [Concomitant]
     Active Substance: SIMVASTATIN
     Dosage: NIGHT 1 DOSAGE FORMS 1 DAYS
     Dates: start: 20190320
  7. MICONAZOLE. [Concomitant]
     Active Substance: MICONAZOLE
     Dosage: INSERT FOR 7 DAYS. 10G 1 DAYS
     Dates: start: 20190617, end: 20190624

REACTIONS (3)
  - Abdominal pain [Unknown]
  - Rash [Unknown]
  - Malaise [Unknown]

NARRATIVE: CASE EVENT DATE: 20190813
